FAERS Safety Report 7381844-3 (Version None)
Quarter: 2011Q1

REPORT INFORMATION
  Report Type: 
  Country: None (occurrence: None)
  Receive Date: 20110329
  Receipt Date: 20101029
  Transmission Date: 20110831
  Serious: Yes (Hospitalization)
  Sender: FDA-Public Use
  Company Number: US-BAYER-201021733NA

PATIENT
  Sex: Female
  Weight: 108 kg

DRUGS (18)
  1. ACE INHIBITOR NOS [Concomitant]
  2. YASMIN [Suspect]
     Indication: CONTRACEPTION
     Route: 048
     Dates: start: 20060701, end: 20081201
  3. YAZ [Suspect]
     Indication: CONTRACEPTION
     Dosage: AS USED DOSE: UNK
     Route: 048
     Dates: start: 20060701, end: 20081201
  4. SYNTHROID [Concomitant]
     Indication: HYPOTHYROIDISM
     Dosage: 300 MCG
  5. LISINOPRIL [Concomitant]
     Indication: HYPERTENSION
     Dosage: 20 MG (DAILY DOSE), QD,
  6. LOVAZA [Concomitant]
  7. PROZAC [Concomitant]
     Indication: DEPRESSION
     Dosage: 10 MG (DAILY DOSE), QD,
  8. HYDROCHLOROTHIAZIDE [Concomitant]
     Indication: HYPERTENSION
  9. METFORMIN HCL [Concomitant]
     Indication: DIABETES MELLITUS
     Dosage: 500 MG (DAILY DOSE), TID,
  10. NSAID'S [Concomitant]
  11. WELLBUTRIN [Concomitant]
     Indication: ATTENTION DEFICIT/HYPERACTIVITY DISORDER
     Dosage: 150 MG (DAILY DOSE), QD,
  12. WELLBUTRIN [Concomitant]
     Indication: ANXIETY
  13. WELLBUTRIN [Concomitant]
     Indication: DEPRESSION
  14. ZITHROMAX [Concomitant]
     Indication: BRONCHITIS
  15. DIURETICS [Concomitant]
  16. ADVIL LIQUI-GELS [Concomitant]
  17. LEVONORGESTREL + ETHINYL ESTRADIOL [Concomitant]
     Indication: ORAL CONTRACEPTION
     Dosage: ONCE
  18. ALEVE [Concomitant]

REACTIONS (8)
  - NAUSEA [None]
  - CHOLECYSTITIS ACUTE [None]
  - ABDOMINAL PAIN [None]
  - CHOLELITHIASIS [None]
  - VOMITING [None]
  - CHILLS [None]
  - BILIARY COLIC [None]
  - PYREXIA [None]
